FAERS Safety Report 11879286 (Version 3)
Quarter: 2016Q1

REPORT INFORMATION
  Report Type: Report from Study
  Country: US (occurrence: US)
  Receive Date: 20151230
  Receipt Date: 20160129
  Transmission Date: 20160526
  Serious: Yes (Hospitalization)
  Sender: FDA-Public Use
  Company Number: US-ACTELION-A-US2015-129229

PATIENT
  Age: 37 Year
  Sex: Male

DRUGS (1)
  1. VELETRI [Suspect]
     Active Substance: EPOPROSTENOL
     Indication: PULMONARY HYPERTENSION
     Dosage: 12 NG/KG, PER MIN
     Route: 042
     Dates: start: 20141110

REACTIONS (2)
  - Alcohol withdrawal syndrome [Unknown]
  - Seizure [Unknown]

NARRATIVE: CASE EVENT DATE: 20151217
